FAERS Safety Report 17850151 (Version 6)
Quarter: 2020Q3

REPORT INFORMATION
  Report Type: Spontaneous
  Country: US (occurrence: US)
  Receive Date: 20200602
  Receipt Date: 20200930
  Transmission Date: 20201103
  Serious: Yes (Other)
  Sender: FDA-Public Use
  Company Number: US-PFIZER INC-2019-07092

PATIENT
  Age: 76 Year
  Sex: Female
  Weight: 72.56 kg

DRUGS (4)
  1. MEKTOVI [Suspect]
     Active Substance: BINIMETINIB
     Indication: COLON CANCER
     Dosage: 45 MG, 2X/DAY
     Dates: start: 20191108
  2. BRAFTOVI [Suspect]
     Active Substance: ENCORAFENIB
     Dosage: 450 MG, 1X/DAY
     Dates: start: 201912
  3. BRAFTOVI [Suspect]
     Active Substance: ENCORAFENIB
     Indication: COLON CANCER
     Dosage: 300 MG, 1X/DAY  (300MG ONCE DAILY))
     Dates: start: 20191129
  4. MEKTOVI [Suspect]
     Active Substance: BINIMETINIB
     Dosage: 45 MG, 2X/DAY
     Dates: start: 201912

REACTIONS (8)
  - Pain [Unknown]
  - Blood potassium decreased [Unknown]
  - Product use in unapproved indication [Unknown]
  - Fatigue [Unknown]
  - Back pain [Unknown]
  - Nephrolithiasis [Unknown]
  - Diarrhoea [Unknown]
  - Off label use [Unknown]
